FAERS Safety Report 8357992-8 (Version None)
Quarter: 2012Q2

REPORT INFORMATION
  Report Type: 
  Country: None (occurrence: None)
  Receive Date: 20120514
  Receipt Date: 20110411
  Transmission Date: 20120825
  Serious: No
  Sender: FDA-Public Use
  Company Number: US-BAYER-2011-031903

PATIENT
  Age: 50 Year
  Sex: Female

DRUGS (1)
  1. EOVIST [Suspect]
     Indication: NUCLEAR MAGNETIC RESONANCE IMAGING ABDOMINAL
     Dosage: 10 ML, ONCE
     Route: 042
     Dates: start: 20110411, end: 20110411

REACTIONS (1)
  - URTICARIA [None]
